FAERS Safety Report 9162876 (Version 1)
Quarter: 2013Q1

REPORT INFORMATION
  Report Type: Spontaneous
  Country: JP (occurrence: JP)
  Receive Date: 20130314
  Receipt Date: 20130314
  Transmission Date: 20140127
  Serious: Yes (Hospitalization)
  Sender: FDA-Public Use
  Company Number: JP-009507513-1303JPN005514

PATIENT
  Age: 62 Year
  Sex: Male

DRUGS (3)
  1. PEGINTRON [Suspect]
     Indication: CHRONIC HEPATITIS C
     Dosage: 100 MICROGRAM, QW (ADMINISTRATION PERIOD: ABOUT 4 MONTHS)
     Route: 058
     Dates: start: 201204
  2. REBETOL [Suspect]
     Dosage: DAILY DOSAGE UNKNOWN (ADMINISTRATION PERIOD: ABOUT 4 MONTHS)
     Route: 048
     Dates: start: 201204
  3. TELAVIC [Suspect]
     Dosage: UNK
     Dates: start: 201204

REACTIONS (1)
  - Pleurisy [Recovering/Resolving]
